FAERS Safety Report 18500552 (Version 1)
Quarter: 2020Q4

REPORT INFORMATION
  Report Type: Spontaneous
  Country: US (occurrence: US)
  Receive Date: 20201112
  Receipt Date: 20201112
  Transmission Date: 20210114
  Serious: Yes (Hospitalization)
  Sender: FDA-Public Use
  Company Number: None

PATIENT
  Age: 63 Year
  Sex: Female

DRUGS (12)
  1. AMPHET/DEXTR, [Concomitant]
  2. VITAMIN D, [Concomitant]
  3. SINGULAR, [Concomitant]
  4. FLUTICASONE, [Concomitant]
  5. VITAMIN B12, [Concomitant]
  6. RESPA-AR, [Concomitant]
  7. XARELTO [Concomitant]
     Active Substance: RIVAROXABAN
  8. FISH OIL, [Concomitant]
  9. GLATIRAMTER 40MG/ML SYR [Suspect]
     Active Substance: GLATIRAMER
     Indication: MULTIPLE SCLEROSIS
     Dosage: ?          OTHER DOSE:1 SYR;?
     Route: 058
     Dates: start: 20150129
  10. DALFAMPRIDINE 10MG ER TAB [Suspect]
     Active Substance: DALFAMPRIDINE
     Indication: MULTIPLE SCLEROSIS
     Dosage: ?          OTHER DOSE:1 TAB;?
     Route: 048
     Dates: start: 20151119
  11. MULTIVITAMIN, [Concomitant]
  12. VESICARE, [Concomitant]

REACTIONS (2)
  - Physiotherapy [None]
  - Thrombosis [None]

NARRATIVE: CASE EVENT DATE: 20201001
